FAERS Safety Report 13561662 (Version 5)
Quarter: 2018Q2

REPORT INFORMATION
  Report Type: Report from Study
  Country: US (occurrence: US)
  Receive Date: 20170518
  Receipt Date: 20180426
  Transmission Date: 20180711
  Serious: Yes (Death, Hospitalization)
  Sender: FDA-Public Use
  Company Number: US-ACTELION-A-US2017-153975

PATIENT
  Age: 77 Year
  Sex: Male
  Weight: 136.96 kg

DRUGS (4)
  1. TRACLEER [Suspect]
     Active Substance: BOSENTAN
     Dosage: 62.5 MG, BID
     Route: 048
  2. SILDENAFIL. [Concomitant]
     Active Substance: SILDENAFIL
  3. TRACLEER [Suspect]
     Active Substance: BOSENTAN
     Indication: PULMONARY HYPERTENSION
     Dosage: 125 MG, BID
     Route: 048
     Dates: start: 2016, end: 20180115
  4. COUMADIN [Concomitant]
     Active Substance: WARFARIN SODIUM

REACTIONS (10)
  - Respiratory failure [Fatal]
  - Chronic obstructive pulmonary disease [Recovering/Resolving]
  - Liver function test increased [Unknown]
  - Off label use [Unknown]
  - Hypoxia [Fatal]
  - Condition aggravated [Fatal]
  - Epistaxis [Unknown]
  - Cough [Fatal]
  - Dyspnoea [Unknown]
  - Pneumonia [Fatal]

NARRATIVE: CASE EVENT DATE: 20180115
